FAERS Safety Report 8817236 (Version 1)
Quarter: 2012Q4

REPORT INFORMATION
  Report Type: 
  Country: US (occurrence: US)
  Receive Date: 20121001
  Receipt Date: 20121001
  Transmission Date: 20130627
  Serious: No
  Sender: FDA-Public Use
  Company Number: US-AMGEN-USASP2012042033

PATIENT
  Age: 88 Year
  Sex: Female

DRUGS (2)
  1. PROLIA [Suspect]
     Indication: OSTEOPOROSIS POSTMENOPAUSAL
     Dosage: UNK UNK, q6mo
     Route: 058
     Dates: start: 20120521
  2. PROLIA [Suspect]

REACTIONS (3)
  - Musculoskeletal pain [Recovered/Resolved]
  - Asthenia [Not Recovered/Not Resolved]
  - Arthritis [Unknown]
